FAERS Safety Report 24646304 (Version 10)
Quarter: 2025Q4

REPORT INFORMATION
  Report Type: Spontaneous
  Country: US (occurrence: US)
  Receive Date: 20241121
  Receipt Date: 20251007
  Transmission Date: 20260118
  Serious: No
  Sender: ROCHE
  Company Number: US-ROCHE-10000131690

PATIENT
  Age: 34 Year
  Sex: Female
  Weight: 67.13 kg

DRUGS (3)
  1. XOLAIR PFS [Suspect]
     Active Substance: OMALIZUMAB
     Indication: Urticaria
     Dosage: FORM STRENGTH: 300MG/2ML
     Route: 058
     Dates: start: 202411
  2. XOLAIR PFS [Suspect]
     Active Substance: OMALIZUMAB
  3. TAKHZYRO PFS [Concomitant]

REACTIONS (7)
  - Pharyngeal disorder [Recovered/Resolved]
  - Gastrointestinal disorder [Recovered/Resolved]
  - Laryngeal disorder [Unknown]
  - Ill-defined disorder [Not Recovered/Not Resolved]
  - Weight decreased [Unknown]
  - Allergy to plants [Unknown]
  - Urticaria [Unknown]

NARRATIVE: CASE EVENT DATE: 20241101
